FAERS Safety Report 8104679-2 (Version None)
Quarter: 2012Q1

REPORT INFORMATION
  Report Type: 
  Country: None (occurrence: None)
  Receive Date: 20120201
  Receipt Date: 20120124
  Transmission Date: 20120608
  Serious: Yes (Hospitalization)
  Sender: FDA-Public Use
  Company Number: US-PFIZER INC-2012020868

PATIENT
  Sex: Male
  Weight: 101 kg

DRUGS (3)
  1. ATACAND HCT [Suspect]
     Dosage: UNK
  2. AMLODIPINE AND ATORVASTATIN [Suspect]
     Dosage: UNK
  3. PALMAZ GENESIS [Suspect]
     Dosage: UNK
     Dates: start: 20070212

REACTIONS (1)
  - CONFUSIONAL STATE [None]
